FAERS Safety Report 17020287 (Version 1)
Quarter: 2019Q4

REPORT INFORMATION
  Report Type: Spontaneous
  Country: IT (occurrence: IT)
  Receive Date: 20191112
  Receipt Date: 20191112
  Transmission Date: 20200122
  Serious: Yes (Other)
  Sender: FDA-Public Use
  Company Number: IT-AMERICAN REGENT INC-20171718

PATIENT
  Age: 51 Year
  Sex: Male
  Weight: 70 kg

DRUGS (4)
  1. ENTYVIO [Concomitant]
     Active Substance: VEDOLIZUMAB
     Indication: CROHN^S DISEASE
     Dosage: 20 ML
     Route: 042
     Dates: start: 2017
  2. FERINJECT [Suspect]
     Active Substance: FERRIC CARBOXYMALTOSE
     Indication: ANAEMIA
     Dosage: 1 DOSAGE FORMS, 1 TOTAL 1 DAYS
     Route: 042
     Dates: start: 20171129, end: 20171129
  3. AZIATHIOPRINE [Concomitant]
     Dosage: 150 MG
     Route: 048
  4. OFUXAL [Concomitant]
     Dosage: 10 MG
     Route: 048

REACTIONS (3)
  - Erythema [Recovered/Resolved]
  - Laryngospasm [Recovered/Resolved]
  - Flushing [Recovered/Resolved]

NARRATIVE: CASE EVENT DATE: 20171129
